FAERS Safety Report 14058026 (Version 8)
Quarter: 2018Q1

REPORT INFORMATION
  Report Type: Report from Study
  Country: US (occurrence: US)
  Receive Date: 20171006
  Receipt Date: 20180307
  Transmission Date: 20180508
  Serious: Yes (Hospitalization, Other)
  Sender: FDA-Public Use
  Company Number: US-GILEAD-2017-0293008

PATIENT
  Age: 15 Year
  Sex: Female
  Weight: 85.1 kg

DRUGS (6)
  1. REGLAN [Suspect]
     Active Substance: METOCLOPRAMIDE HYDROCHLORIDE
     Indication: PRODUCT USED FOR UNKNOWN INDICATION
     Route: 065
  2. ADCIRCA [Concomitant]
     Active Substance: TADALAFIL
  3. AMBRISENTAN [Suspect]
     Active Substance: AMBRISENTAN
     Indication: PRODUCT USED FOR UNKNOWN INDICATION
     Dosage: 10 MG, QD
     Route: 048
     Dates: start: 20151030
  4. TPN [Suspect]
     Active Substance: AMINO ACIDS\DEXTROSE\ELECTROLYTES NOS\SOYBEAN OIL
     Indication: PRODUCT USED FOR UNKNOWN INDICATION
     Route: 065
  5. SODIUM BICARBONATE. [Suspect]
     Active Substance: SODIUM BICARBONATE
     Indication: RENAL TUBULAR ACIDOSIS
     Route: 048
  6. OXYGEN. [Concomitant]
     Active Substance: OXYGEN

REACTIONS (28)
  - Nasal congestion [Not Recovered/Not Resolved]
  - Dizziness [Unknown]
  - Impaired gastric emptying [Not Recovered/Not Resolved]
  - Right-to-left cardiac shunt [Not Recovered/Not Resolved]
  - Dermatitis bullous [Not Recovered/Not Resolved]
  - Gastrooesophageal reflux disease [Not Recovered/Not Resolved]
  - Weight fluctuation [Recovered/Resolved]
  - Vitamin D decreased [Unknown]
  - Fluid retention [Recovering/Resolving]
  - Muscle twitching [Unknown]
  - Nephropathy [Not Recovered/Not Resolved]
  - Off label use [Not Recovered/Not Resolved]
  - Pulmonary hypertension [Not Recovered/Not Resolved]
  - Pyrexia [Not Recovered/Not Resolved]
  - Dysphonia [Not Recovered/Not Resolved]
  - Headache [Not Recovered/Not Resolved]
  - Device occlusion [Unknown]
  - Respiratory tract infection [Not Recovered/Not Resolved]
  - Ear pain [Not Recovered/Not Resolved]
  - Dyspnoea [Not Recovered/Not Resolved]
  - Throat irritation [Not Recovered/Not Resolved]
  - Pulmonary arterial pressure abnormal [Not Recovered/Not Resolved]
  - Malaise [Not Recovered/Not Resolved]
  - Migraine [Unknown]
  - Chronic kidney disease [Not Recovered/Not Resolved]
  - Weight increased [Unknown]
  - Oedema peripheral [Recovering/Resolving]
  - Oropharyngeal pain [Not Recovered/Not Resolved]

NARRATIVE: CASE EVENT DATE: 20151030
